FAERS Safety Report 15367794 (Version 1)
Quarter: 2018Q3

REPORT INFORMATION
  Report Type: Spontaneous
  Country: US (occurrence: US)
  Receive Date: 20180907
  Receipt Date: 20180907
  Transmission Date: 20181010
  Serious: No
  Sender: FDA-Public Use
  Company Number: None

PATIENT
  Age: 51 Year
  Sex: Female
  Weight: 68.4 kg

DRUGS (17)
  1. HYDROCORTIZONE/NEOMYCIN 50MG/15MG RECTAL SUPPOSITORY [Suspect]
     Active Substance: HYDROCORTISONE\NEOMYCIN SULFATE
     Indication: ANAL FISSURE
     Dosage: ?          QUANTITY:1 SUPPOSITORY(IES);?
     Route: 054
     Dates: start: 20180901, end: 20180906
  2. SYNTHROID [Concomitant]
     Active Substance: LEVOTHYROXINE SODIUM
  3. NEURONTIN [Concomitant]
     Active Substance: GABAPENTIN
  4. MIRALAX [Concomitant]
     Active Substance: POLYETHYLENE GLYCOL 3350
  5. GAS?X [Concomitant]
     Active Substance: DIMETHICONE
  6. TYLENOL [Concomitant]
     Active Substance: ACETAMINOPHEN
  7. METAMUCIL [Concomitant]
     Active Substance: PLANTAGO SEED
  8. COLACE [Concomitant]
     Active Substance: DOCUSATE SODIUM
  9. KLONOPIN [Concomitant]
     Active Substance: CLONAZEPAM
  10. FLEET SUPPOSITORIES [Concomitant]
  11. APRISO [Concomitant]
     Active Substance: MESALAMINE
  12. ZOLOFT [Concomitant]
     Active Substance: SERTRALINE HYDROCHLORIDE
  13. PROTONIX [Concomitant]
     Active Substance: PANTOPRAZOLE SODIUM
  14. PROBIOTICS [Concomitant]
     Active Substance: PROBIOTICS NOS
  15. BENADRYL [Concomitant]
     Active Substance: DIPHENHYDRAMINE HYDROCHLORIDE
  16. NITROGLYCERIN. [Concomitant]
     Active Substance: NITROGLYCERIN
  17. MULTIVITAMIN [Concomitant]
     Active Substance: VITAMINS

REACTIONS (5)
  - Panic attack [None]
  - Insomnia [None]
  - Dyspnoea [None]
  - Agitation [None]
  - Mood swings [None]

NARRATIVE: CASE EVENT DATE: 20180907
